FAERS Safety Report 6020392-X (Version None)
Quarter: 2008Q4

REPORT INFORMATION
  Report Type: 
  Country: None (occurrence: None)
  Receive Date: 20081226
  Receipt Date: 20081217
  Transmission Date: 20090506
  Serious: Yes (Hospitalization)
  Sender: FDA-Public Use
  Company Number: JP-MERCK-0812USA02677

PATIENT
  Age: 90 Year
  Sex: Female

DRUGS (10)
  1. PEPCID RPD [Suspect]
     Route: 048
     Dates: start: 20011009
  2. GENINAX [Suspect]
     Indication: BRONCHITIS
     Route: 048
     Dates: start: 20081202, end: 20081202
  3. BLOPRESS [Concomitant]
     Route: 048
     Dates: start: 20021226
  4. LANIRAPID [Concomitant]
     Route: 048
     Dates: start: 19900818
  5. CONIEL [Concomitant]
     Route: 048
     Dates: start: 20050528
  6. IFENPRODIL TARTRATE [Concomitant]
     Route: 048
     Dates: start: 20000510
  7. ROCORNAL [Concomitant]
     Route: 048
     Dates: start: 20000510
  8. TRIAZOLAM [Concomitant]
     Route: 048
     Dates: start: 19910111
  9. EURODIN [Concomitant]
     Route: 048
     Dates: start: 19910111
  10. PELEX [Concomitant]
     Route: 048
     Dates: start: 20081202

REACTIONS (8)
  - ARTHRALGIA [None]
  - EYELID FUNCTION DISORDER [None]
  - HYPERKALAEMIA [None]
  - INCORRECT DOSE ADMINISTERED [None]
  - NAUSEA [None]
  - PAIN [None]
  - SPEECH DISORDER [None]
  - TREATMENT NONCOMPLIANCE [None]
